FAERS Safety Report 15981210 (Version 2)
Quarter: 2019Q2

REPORT INFORMATION
  Report Type: Spontaneous
  Country: KR (occurrence: KR)
  Receive Date: 20190219
  Receipt Date: 20190423
  Transmission Date: 20190711
  Serious: Yes (Death, Other)
  Sender: FDA-Public Use
  Company Number: KR-JAZZ-2019-KR-002231

PATIENT
  Age: 48 Year
  Sex: Male
  Weight: 62 kg

DRUGS (1)
  1. DEFITELIO [Suspect]
     Active Substance: DEFIBROTIDE SODIUM
     Indication: VENOOCCLUSIVE DISEASE
     Dosage: 8 VIALS/DAY
     Route: 042
     Dates: start: 20181118, end: 20190211

REACTIONS (1)
  - Death [Fatal]
